FAERS Safety Report 4318055-1 (Version None)
Quarter: 2004Q1

REPORT INFORMATION
  Report Type: 
  Country: None (occurrence: None)
  Receive Date: 20040317
  Receipt Date: 20040112
  Transmission Date: 20041129
  Serious: Yes (Other)
  Sender: FDA-Public Use
  Company Number: PHRM2004FR00510

PATIENT
  Age: 57 Year
  Sex: Female
  Weight: 56 kg

DRUGS (4)
  1. LAMISIL [Suspect]
     Indication: NAIL TINEA
     Dosage: 250 MG, UNK
     Route: 048
     Dates: start: 20030415, end: 20030615
  2. PLAQUENIL [Concomitant]
     Indication: SJOGREN'S SYNDROME
     Dosage: 2 DF / DAY
     Route: 048
     Dates: start: 20001223
  3. CORTANCYL [Concomitant]
     Indication: SJOGREN'S SYNDROME
     Dosage: 10 MG, UNK
     Route: 048
  4. LEVOTHYROXINE SODIUM [Concomitant]
     Indication: THYROIDITIS
     Dosage: 50 UG, UNK
     Route: 048
     Dates: start: 20000101

REACTIONS (3)
  - CUTANEOUS LUPUS ERYTHEMATOSUS [None]
  - DERMATITIS [None]
  - TOXIC SKIN ERUPTION [None]
